APPROVED DRUG PRODUCT: FAMOTIDINE PRESERVATIVE FREE
Active Ingredient: FAMOTIDINE
Strength: 10MG/ML
Dosage Form/Route: INJECTABLE;INJECTION
Application: A075486 | Product #001 | TE Code: AP
Applicant: HIKMA PHARMACEUTICALS USA INC
Approved: Apr 16, 2001 | RLD: No | RS: Yes | Type: RX